FAERS Safety Report 6709765-7 (Version None)
Quarter: 2010Q2

REPORT INFORMATION
  Report Type: 
  Country: None (occurrence: None)
  Receive Date: 20100504
  Receipt Date: 20100422
  Transmission Date: 20101027
  Serious: Yes (Life-Threatening, Hospitalization)
  Sender: FDA-Public Use
  Company Number: US-ROCHE-700747

PATIENT
  Age: 58 Year
  Sex: Female

DRUGS (2)
  1. BEVACIZUMAB [Suspect]
     Indication: CARCINOID TUMOUR OF THE PANCREAS
     Dosage: LAST DOSE OG BEVACIZUMAB ON 16 MARCH 2010, OVER 30-90 MINUTES ON DAYS 1 AND 15
     Route: 042
     Dates: start: 20091222
  2. TEMSIROLIMUS [Suspect]
     Indication: CARCINOID TUMOUR OF THE PANCREAS
     Dosage: TEMSIROLIMUS 25 MG ON DAY 1.8,.15 AND 22, ;AST DOSE OF DRUG WAS ON 23 MARCH 2010 (CYCLE 4. DAY8).
     Route: 042
     Dates: start: 20091222

REACTIONS (2)
  - LEFT VENTRICULAR DYSFUNCTION [None]
  - PNEUMONITIS [None]
